FAERS Safety Report 12959367 (Version 5)
Quarter: 2017Q4

REPORT INFORMATION
  Report Type: Report from Study
  Country: AR (occurrence: AR)
  Receive Date: 20161121
  Receipt Date: 20171019
  Transmission Date: 20180320
  Serious: Yes (Hospitalization, Other)
  Sender: FDA-Public Use
  Company Number: PHHY2016AR158791

PATIENT
  Age: 55 Year
  Sex: Female

DRUGS (13)
  1. IBUPROFEN. [Concomitant]
     Active Substance: IBUPROFEN
     Indication: PRODUCT USED FOR UNKNOWN INDICATION
     Route: 065
  2. DEXAMETHASONE. [Concomitant]
     Active Substance: DEXAMETHASONE
     Indication: PRODUCT USED FOR UNKNOWN INDICATION
     Route: 065
  3. LANOXIM [Concomitant]
     Indication: PRODUCT USED FOR UNKNOWN INDICATION
     Route: 065
  4. RELIVERAN [Concomitant]
     Indication: PRODUCT USED FOR UNKNOWN INDICATION
     Route: 065
  5. SANDOSTATIN LAR DEPOT [Suspect]
     Active Substance: OCTREOTIDE ACETATE
     Indication: NEUROENDOCRINE CARCINOMA
     Dosage: 30 MG, QMO (EVERY 28 DAYS)
     Route: 065
     Dates: start: 20141209
  6. AFINITOR [Suspect]
     Active Substance: EVEROLIMUS
     Indication: NEUROENDOCRINE TUMOUR
     Dosage: UNK
     Route: 065
     Dates: start: 20141209
  7. TRAMADOL. [Concomitant]
     Active Substance: TRAMADOL
     Indication: PRODUCT USED FOR UNKNOWN INDICATION
     Route: 065
  8. EPLERENONE. [Concomitant]
     Active Substance: EPLERENONE
     Indication: PRODUCT USED FOR UNKNOWN INDICATION
     Route: 065
  9. AFINITOR [Suspect]
     Active Substance: EVEROLIMUS
     Dosage: 10 MG, QOD
     Route: 065
  10. CARVEDILOL. [Concomitant]
     Active Substance: CARVEDILOL
     Indication: PRODUCT USED FOR UNKNOWN INDICATION
     Route: 065
  11. SANDOSTATIN LAR DEPOT [Suspect]
     Active Substance: OCTREOTIDE ACETATE
     Dosage: 30 MG, QW3 (EVENRY 21 DAYS)
     Route: 065
  12. SANDOSTATIN LAR DEPOT [Suspect]
     Active Substance: OCTREOTIDE ACETATE
     Dosage: UNK, QMO (EVERY 28 DAYS)
     Route: 065
  13. CALMADOR [Concomitant]
     Active Substance: TRAMADOL HYDROCHLORIDE
     Indication: PRODUCT USED FOR UNKNOWN INDICATION
     Route: 065

REACTIONS (14)
  - Hepatic neoplasm [Recovering/Resolving]
  - Flatulence [Unknown]
  - Inappropriate schedule of drug administration [Unknown]
  - Colitis [Not Recovered/Not Resolved]
  - Poisoning [Recovered/Resolved]
  - Malignant neoplasm progression [Not Recovered/Not Resolved]
  - Intestinal metastasis [Not Recovered/Not Resolved]
  - Rash [Not Recovered/Not Resolved]
  - Abdominal pain upper [Unknown]
  - Peritoneal lesion [Not Recovered/Not Resolved]
  - Blood chromogranin A increased [Not Recovered/Not Resolved]
  - Hepatic lesion [Unknown]
  - Ascites [Unknown]
  - Intra-abdominal fluid collection [Unknown]

NARRATIVE: CASE EVENT DATE: 20161024
